FAERS Safety Report 16095303 (Version 2)
Quarter: 2019Q1

REPORT INFORMATION
  Report Type: Report from Study
  Country: BR (occurrence: BR)
  Receive Date: 20190320
  Receipt Date: 20190328
  Transmission Date: 20190418
  Serious: Yes (Hospitalization)
  Sender: FDA-Public Use
  Company Number: BR-BAYER-2019-023674

PATIENT
  Age: 42 Year
  Sex: Female

DRUGS (9)
  1. ASCORBIC ACID. [Concomitant]
     Active Substance: ASCORBIC ACID
     Indication: IMMUNODEFICIENCY
     Dosage: 1 MG, QD
  2. STIVARGA [Suspect]
     Active Substance: REGORAFENIB
     Indication: GASTROINTESTINAL CANCER METASTATIC
     Dosage: 160 MG, QD
     Route: 048
     Dates: start: 201812
  3. LOSARTANA POTASSICA [Concomitant]
     Active Substance: LOSARTAN
     Indication: HYPERTENSION
     Dosage: 50 MG, QD
     Dates: start: 201808
  4. ALPRAZOLAM. [Concomitant]
     Active Substance: ALPRAZOLAM
     Indication: INSOMNIA
     Dosage: 1 MG
  5. STIVARGA [Suspect]
     Active Substance: REGORAFENIB
     Indication: GASTROINTESTINAL STROMAL TUMOUR
     Dosage: 120 MG QD
     Route: 048
     Dates: start: 20181205, end: 201812
  6. PACO [Concomitant]
     Active Substance: ACETAMINOPHEN\CODEINE PHOSPHATE
     Indication: PAIN
  7. DUAL [DULOXETINE HYDROCHLORIDE] [Concomitant]
     Indication: ANXIETY
     Dosage: 30 MG, OM
     Dates: start: 2016
  8. PURAN [Concomitant]
     Active Substance: LEVOTHYROXINE SODIUM
     Indication: THYROID DISORDER
     Dosage: 2.5 MG, QD
     Dates: start: 201812
  9. VITAMIN D [Concomitant]
     Active Substance: CHOLECALCIFEROL
     Indication: IMMUNODEFICIENCY
     Dosage: 50000 IU ONCE A WEEK

REACTIONS (6)
  - Hospitalisation [Not Recovered/Not Resolved]
  - Blister [Not Recovered/Not Resolved]
  - Somnolence [None]
  - Burning sensation [Not Recovered/Not Resolved]
  - Glossodynia [Recovered/Resolved]
  - Off label use [None]

NARRATIVE: CASE EVENT DATE: 201812
